FAERS Safety Report 4750142-6 (Version None)
Quarter: 2005Q3

REPORT INFORMATION
  Report Type: 
  Country: None (occurrence: None)
  Receive Date: 20050823
  Receipt Date: 20050811
  Transmission Date: 20060218
  Serious: No
  Sender: FDA-Public Use
  Company Number: HT-BOEHRINGER INGELHEIM PHARMACEUTICALS, INC.-2005-DE-03165GD

PATIENT
  Sex: Female

DRUGS (1)
  1. NEVIRAPINE [Suspect]
     Indication: PROPHYLAXIS

REACTIONS (2)
  - MATERNAL DRUGS AFFECTING FOETUS [None]
  - STILLBIRTH [None]
